APPROVED DRUG PRODUCT: SULFONAMIDES DUPLEX
Active Ingredient: SULFADIAZINE; SULFAMERAZINE
Strength: 250MG/5ML;250MG/5ML
Dosage Form/Route: SUSPENSION;ORAL
Application: N006317 | Product #007
Applicant: ELI LILLY AND CO
Approved: Approved Prior to Jan 1, 1982 | RLD: No | RS: No | Type: DISCN